FAERS Safety Report 14289999 (Version 2)
Quarter: 2018Q2

REPORT INFORMATION
  Report Type: Report from Study
  Country: None (occurrence: AR)
  Receive Date: 20171215
  Receipt Date: 20180518
  Transmission Date: 20180711
  Serious: Yes (Other)
  Sender: FDA-Public Use
  Company Number: AR-ABBVIE-17K-007-2138809-00

PATIENT
  Age: 38 Year
  Sex: Female

DRUGS (2)
  1. HUMIRA [Suspect]
     Active Substance: ADALIMUMAB
     Indication: COLITIS ULCERATIVE
     Route: 058
  2. HUMIRA [Suspect]
     Active Substance: ADALIMUMAB
     Indication: COLITIS ULCERATIVE
     Route: 058
     Dates: start: 20160910, end: 20171202

REACTIONS (5)
  - Joint injury [Recovered/Resolved]
  - Accident [Unknown]
  - Visual impairment [Recovered/Resolved]
  - Herpes virus infection [Recovered/Resolved]
  - Graft complication [Recovering/Resolving]

NARRATIVE: CASE EVENT DATE: 20170220
